FAERS Safety Report 20112604 (Version 1)
Quarter: 2021Q4

REPORT INFORMATION
  Report Type: Spontaneous
  Country: US (occurrence: US)
  Receive Date: 20211125
  Receipt Date: 20211125
  Transmission Date: 20220303
  Serious: No
  Sender: FDA-Public Use
  Company Number: US-NOVARTISTESTPH-NVSC2021US270009

PATIENT
  Sex: Female

DRUGS (3)
  1. PREDNISOLONE ACETATE [Suspect]
     Active Substance: PREDNISOLONE ACETATE
     Indication: Product used for unknown indication
     Dosage: 1 DRP(4 TIMES FOR WEEK)
     Route: 065
     Dates: start: 20211028
  2. PREDNISOLONE ACETATE [Suspect]
     Active Substance: PREDNISOLONE ACETATE
     Dosage: 3 DRP(WEEK)
     Route: 065
     Dates: start: 20211028
  3. PREDNISOLONE ACETATE [Suspect]
     Active Substance: PREDNISOLONE ACETATE
     Dosage: 2 DRP(5 DAYS)
     Route: 065
     Dates: start: 20211028

REACTIONS (2)
  - Hypoaesthesia oral [Unknown]
  - Taste disorder [Unknown]
